FAERS Safety Report 13463690 (Version 1)
Quarter: 2017Q2

REPORT INFORMATION
  Report Type: Spontaneous
  Country: BR (occurrence: BR)
  Receive Date: 20170420
  Receipt Date: 20170420
  Transmission Date: 20170830
  Serious: Yes (Death, Other)
  Sender: FDA-Public Use
  Company Number: BR-SEATTLE GENETICS-2017SGN01007

PATIENT

DRUGS (1)
  1. ADCETRIS [Suspect]
     Active Substance: BRENTUXIMAB VEDOTIN
     Indication: HODGKIN^S DISEASE
     Dosage: UNK
     Route: 065
     Dates: start: 201607

REACTIONS (3)
  - Hodgkin^s disease [Fatal]
  - Vertebral lesion [Fatal]
  - Bacterial infection [Fatal]

NARRATIVE: CASE EVENT DATE: 201611
